FAERS Safety Report 6491317-8 (Version None)
Quarter: 2009Q4

REPORT INFORMATION
  Report Type: 
  Country: None (occurrence: None)
  Receive Date: 20091211
  Receipt Date: 20091204
  Transmission Date: 20100525
  Serious: Yes (Hospitalization)
  Sender: FDA-Public Use
  Company Number: US-ELI_LILLY_AND_COMPANY-US200912002655

PATIENT
  Sex: Female
  Weight: 74.83 kg

DRUGS (21)
  1. BYETTA [Suspect]
     Indication: TYPE 2 DIABETES MELLITUS
     Dosage: 5 UG, 2/D
     Route: 058
     Dates: start: 20080401, end: 20080501
  2. BYETTA [Suspect]
     Dosage: 10 UG, 2/D
     Route: 058
     Dates: start: 20080501, end: 20091129
  3. GLUCOPHAGE [Concomitant]
     Dosage: 1000 MG, 2/D
  4. SYNTHROID [Concomitant]
     Dosage: 100 UG, DAILY (1/D)
  5. EFFEXOR [Concomitant]
     Dosage: 75 MG, DAILY (1/D)
  6. LASIX [Concomitant]
     Dosage: 40 MG, DAILY (1/D)
  7. CLONIDINE [Concomitant]
     Dosage: 0.1 MG, DAILY (1/D)
  8. AVAPRO [Concomitant]
     Dosage: 300 MG, DAILY (1/D)
  9. PREVACID [Concomitant]
     Dosage: 30 MG, DAILY (1/D)
  10. PROCARDIA XL [Concomitant]
     Dosage: 30 MG, 2/D
  11. POTASSIUM CHLORIDE [Concomitant]
     Dosage: 20 MG, DAILY (1/D)
  12. VITAMIN D [Concomitant]
     Dosage: 1000 MG, DAILY (1/D)
  13. VYTORIN [Concomitant]
     Dosage: UNK, DAILY (1/D)
  14. LOVAZA [Concomitant]
     Dosage: 1000 MG, 2/D
  15. OSTEO BI-FLEX [Concomitant]
     Dosage: UNK, UNKNOWN
  16. BIOTIN [Concomitant]
     Dosage: 5000 MG, DAILY (1/D)
  17. LYRICA [Concomitant]
     Dosage: 75 MG, 2/D
  18. ASPIRIN [Concomitant]
     Dosage: 81 MG, DAILY (1/D)
  19. CENTRUM SILVER [Concomitant]
     Dosage: UNK, DAILY (1/D)
  20. BLACK COHOSH [Concomitant]
     Dosage: UNK, UNKNOWN
     Dates: start: 20090201
  21. HORMONES AND RELATED AGENTS [Concomitant]
     Indication: HORMONE REPLACEMENT THERAPY
     Dosage: UNK, UNKNOWN
     Dates: end: 20091001

REACTIONS (17)
  - ABNORMAL DREAMS [None]
  - BODY TEMPERATURE DECREASED [None]
  - COLD SWEAT [None]
  - CONFUSIONAL STATE [None]
  - DEHYDRATION [None]
  - DIARRHOEA [None]
  - FEELING COLD [None]
  - HOT FLUSH [None]
  - HYPOPHAGIA [None]
  - INCONTINENCE [None]
  - INFLUENZA [None]
  - MALAISE [None]
  - NO THERAPEUTIC RESPONSE [None]
  - PELVIC FLOOR MUSCLE WEAKNESS [None]
  - TREATMENT NONCOMPLIANCE [None]
  - VOMITING [None]
  - WEIGHT DECREASED [None]
